FAERS Safety Report 9262525 (Version 1)
Quarter: 2013Q2

REPORT INFORMATION
  Report Type: Spontaneous
  Country: US (occurrence: None)
  Receive Date: 20130426
  Receipt Date: 20130426
  Transmission Date: 20140414
  Serious: Yes (Hospitalization)
  Sender: FDA-Public Use
  Company Number: None

PATIENT
  Age: 76 Year
  Sex: Male
  Weight: 93.9 kg

DRUGS (1)
  1. LIDOCAINE HCL [Suspect]
     Indication: OSTEOARTHRITIS
     Dosage: 6 CC INJECTED X1
     Dates: start: 20130416

REACTIONS (4)
  - Arthralgia [None]
  - Joint swelling [None]
  - Aspiration joint abnormal [None]
  - Arthritis bacterial [None]
